FAERS Safety Report 15992455 (Version 1)
Quarter: 2019Q1

REPORT INFORMATION
  Report Type: Report from Study
  Country: CA (occurrence: CA)
  Receive Date: 20190221
  Receipt Date: 20190221
  Transmission Date: 20190418
  Serious: Yes (Other)
  Sender: FDA-Public Use
  Company Number: CA-INCYTE CORPORATION-2018IN000658

PATIENT

DRUGS (2)
  1. JAKAVI [Suspect]
     Active Substance: RUXOLITINIB
     Indication: MYELOFIBROSIS
     Dosage: 10 MG, BID
     Route: 048
     Dates: start: 20171120
  2. PENICILLIN [Suspect]
     Active Substance: PENICILLIN
     Indication: PRODUCT USED FOR UNKNOWN INDICATION
     Dosage: 20 MG, QID
     Route: 065

REACTIONS (8)
  - Hypersomnia [Unknown]
  - Malaise [Unknown]
  - Full blood count decreased [Unknown]
  - Weight increased [Unknown]
  - Swelling face [Unknown]
  - Vomiting [Unknown]
  - Abscess jaw [Unknown]
  - Fatigue [Unknown]

NARRATIVE: CASE EVENT DATE: 2018
